FAERS Safety Report 5264562-7 (Version None)
Quarter: 2007Q1

REPORT INFORMATION
  Report Type: 
  Country: None (occurrence: None)
  Receive Date: 20061213
  Receipt Date: 20040628
  Transmission Date: 20070707
  Serious: Yes (Other)
  Sender: FDA-Public Use
  Company Number: 2004UW13351

PATIENT
  Age: 52 Year
  Sex: Male
  Weight: 83.9154 kg

DRUGS (6)
  1. IRESSA [Suspect]
     Indication: LUNG NEOPLASM MALIGNANT
     Dosage: 250 MG PO
     Route: 048
     Dates: start: 20040501
  2. UNSPECIFIED BLOOD PRESSURE MEDICATION [Concomitant]
  3. TAXOL [Concomitant]
  4. TAXOTERE [Concomitant]
  5. GEMZAR [Concomitant]
  6. CISPLATIN [Concomitant]

REACTIONS (3)
  - COUGH [None]
  - DERMATITIS ACNEIFORM [None]
  - HAEMOPTYSIS [None]
